FAERS Safety Report 8567784-2 (Version None)
Quarter: 2012Q3

REPORT INFORMATION
  Report Type: 
  Country: None (occurrence: None)
  Receive Date: 20120803
  Receipt Date: 20120725
  Transmission Date: 20120928
  Serious: Yes (Other)
  Sender: FDA-Public Use
  Company Number: US-FRI-1000037383

PATIENT
  Age: 49 Year
  Sex: Female

DRUGS (3)
  1. LOSARTAN POTASSIUM [Concomitant]
     Indication: HYPERTENSION
  2. VIIBRYD [Suspect]
     Indication: POST-TRAUMATIC STRESS DISORDER
     Dosage: 20 MG
     Route: 048
     Dates: start: 20110101
  3. LOVASTATIN [Concomitant]
     Indication: BLOOD CHOLESTEROL INCREASED

REACTIONS (3)
  - SKIN DISCOLOURATION [None]
  - TOOTH INFECTION [None]
  - OFF LABEL USE [None]
